FAERS Safety Report 6722849-2 (Version None)
Quarter: 2010Q2

REPORT INFORMATION
  Report Type: 
  Country: None (occurrence: None)
  Receive Date: 20100512
  Receipt Date: 20100512
  Transmission Date: 20101027
  Serious: Yes (Other)
  Sender: FDA-Public Use
  Company Number: None

PATIENT
  Age: 64 Year
  Sex: Female
  Weight: 56.6996 kg

DRUGS (2)
  1. FOSAMAX [Suspect]
     Indication: OSTEOPOROSIS
     Dosage: 10 MG ONCE A DAY PO
     Route: 048
     Dates: start: 19960501, end: 20010501
  2. FOSAMAX [Suspect]
     Dosage: 70 MG ONCE A WEEK PO
     Route: 048
     Dates: start: 20010501, end: 20080401

REACTIONS (3)
  - BALANCE DISORDER [None]
  - FEMUR FRACTURE [None]
  - PAIN IN EXTREMITY [None]
